FAERS Safety Report 11172688 (Version 1)
Quarter: 2015Q2

REPORT INFORMATION
  Report Type: Report from Study
  Country: US (occurrence: US)
  Receive Date: 20150608
  Receipt Date: 20150608
  Transmission Date: 20150821
  Serious: No
  Sender: FDA-Public Use
  Company Number: US-AMGEN-USASL2015022184

PATIENT
  Age: 60 Year
  Sex: Female

DRUGS (1)
  1. PROCRIT [Suspect]
     Active Substance: ERYTHROPOIETIN
     Indication: NEPHROGENIC ANAEMIA
     Dosage: UNK
     Route: 065

REACTIONS (6)
  - Nausea [Unknown]
  - Arteriosclerosis coronary artery [Unknown]
  - Proteinuria [Unknown]
  - Vomiting [Unknown]
  - Acidosis [Unknown]
  - Blood creatinine increased [Unknown]
